FAERS Safety Report 8588267 (Version 2)
Quarter: 2013Q1

REPORT INFORMATION
  Report Type: Spontaneous
  Country: US (occurrence: US)
  Receive Date: 20120531
  Receipt Date: 20130228
  Transmission Date: 20140127
  Serious: Yes (Other)
  Sender: FDA-Public Use
  Company Number: US-ROCHE-1073600

PATIENT
  Sex: Male
  Weight: 98.52 kg

DRUGS (1)
  1. ACCUTANE [Suspect]
     Indication: ACNE
     Route: 065
     Dates: start: 1982, end: 1984

REACTIONS (5)
  - Inflammatory bowel disease [Unknown]
  - Colitis ulcerative [Unknown]
  - Proctitis [Unknown]
  - Depression [Unknown]
  - Injury [Unknown]
